FAERS Safety Report 7001793-X (Version None)
Quarter: 2010Q3

REPORT INFORMATION
  Report Type: 
  Country: None (occurrence: None)
  Receive Date: 20100920
  Receipt Date: 20070702
  Transmission Date: 20110219
  Serious: Yes (Other)
  Sender: FDA-Public Use
  Company Number: US-ASTRAZENECA-2006UW26337

PATIENT
  Age: 638 Month
  Sex: Female
  Weight: 101.2 kg

DRUGS (16)
  1. SEROQUEL [Suspect]
     Indication: SLEEP DISORDER
     Dosage: 200 TO 800 MG
     Route: 048
     Dates: start: 19980101
  2. SEROQUEL [Suspect]
     Indication: DEPRESSION
     Dosage: 200 TO 800 MG
     Route: 048
     Dates: start: 19980101
  3. SEROQUEL [Suspect]
     Indication: SCHIZOPHRENIA
     Dosage: 200 TO 800 MG
     Route: 048
     Dates: start: 19980101
  4. SEROQUEL [Suspect]
     Dosage: 25 MG TO 300 MG DISPENSED
     Route: 048
     Dates: start: 20030401, end: 20060719
  5. SEROQUEL [Suspect]
     Dosage: 25 MG TO 300 MG DISPENSED
     Route: 048
     Dates: start: 20030401, end: 20060719
  6. SEROQUEL [Suspect]
     Dosage: 25 MG TO 300 MG DISPENSED
     Route: 048
     Dates: start: 20030401, end: 20060719
  7. ZYPREXA [Suspect]
  8. RISPERDAL [Concomitant]
  9. PROZAC [Concomitant]
     Route: 048
     Dates: start: 20030414
  10. GEODON [Concomitant]
     Route: 048
     Dates: start: 20060719
  11. REMERON [Concomitant]
     Indication: DEPRESSION
     Route: 048
     Dates: start: 20060719
  12. REMERON [Concomitant]
     Indication: ANXIETY
     Route: 048
     Dates: start: 20060719
  13. REMERON [Concomitant]
     Indication: INSOMNIA
     Route: 048
     Dates: start: 20060719
  14. CLONAZEPAM [Concomitant]
     Route: 048
     Dates: start: 20060719
  15. METFORMIN [Concomitant]
     Route: 048
  16. LISINOPRIL [Concomitant]
     Route: 048

REACTIONS (3)
  - DIABETES MELLITUS [None]
  - DIABETIC KETOACIDOSIS [None]
  - TYPE 2 DIABETES MELLITUS [None]
